FAERS Safety Report 21451931 (Version 1)
Quarter: 2022Q4

REPORT INFORMATION
  Report Type: Spontaneous
  Country: LU (occurrence: LU)
  Receive Date: 20221013
  Receipt Date: 20221013
  Transmission Date: 20230112
  Serious: Yes (Hospitalization)
  Sender: FDA-Public Use
  Company Number: None

PATIENT
  Age: 48 Year
  Sex: Female
  Weight: 64 kg

DRUGS (8)
  1. ELOXATIN [Suspect]
     Active Substance: OXALIPLATIN
     Indication: Colon cancer
     Dosage: 144.57 MG, CYCLICAL, 3RD COURSE OF CHEMOTHERAPY
     Route: 042
     Dates: start: 20220920, end: 20220920
  2. LEUCOVORIN [Suspect]
     Active Substance: LEUCOVORIN
     Indication: Colon cancer
     Dosage: 680.32 MG, 3RD COURSE OF CHEMOTHERAPY
     Route: 042
     Dates: start: 20220920, end: 20220920
  3. VECTIBIX [Suspect]
     Active Substance: PANITUMUMAB
     Indication: Colon cancer
     Dosage: 376.81 MG, 3RD COURSE OF CHEMOTHERAPY
     Route: 042
     Dates: start: 20220920, end: 20220920
  4. FLUOROURACIL [Suspect]
     Active Substance: FLUOROURACIL
     Indication: Colon cancer
     Dosage: 680.32 MG, BOLUS3RD COURSE OF CHEMOTHERAPY
     Route: 042
     Dates: start: 20220920, end: 20220920
  5. FLUOROURACIL [Suspect]
     Active Substance: FLUOROURACIL
     Dosage: THEN ADMINISTRATION WITH PUMP3RD COURSE OF CHEMOTHERAPY
     Route: 042
     Dates: start: 20220920, end: 20220920
  6. ONDANSETRON [Concomitant]
     Active Substance: ONDANSETRON
     Indication: Premedication
     Dosage: 8 MG, 1X, 30 MINUTES BEFORE CHIMIOTHERAPY
     Route: 042
     Dates: start: 20220920, end: 20220920
  7. DEXAMETHASONE [Concomitant]
     Active Substance: DEXAMETHASONE
     Indication: Premedication
     Dosage: 8 MG, 30 MINUTES BEFORE CHIMIOTHERAPY
     Route: 042
     Dates: start: 20220920, end: 20220920
  8. DEXCHLORPHENIRAMINE [Concomitant]
     Active Substance: DEXCHLORPHENIRAMINE
     Indication: Premedication
     Dosage: 5 MG, 1X, 30 MINUTES BEFORE CHIMIOTHERAPY
     Route: 042
     Dates: start: 20220920, end: 20220920

REACTIONS (2)
  - Stridor [Recovering/Resolving]
  - Dyspnoea [Recovering/Resolving]

NARRATIVE: CASE EVENT DATE: 20220920
